FAERS Safety Report 4950668-6 (Version None)
Quarter: 2006Q1

REPORT INFORMATION
  Report Type: 
  Country: None (occurrence: None)
  Receive Date: 20060321
  Receipt Date: 20060321
  Transmission Date: 20060701
  Serious: Yes (Other)
  Sender: FDA-Public Use
  Company Number: None

PATIENT
  Age: 58 Year
  Sex: Male
  Weight: 74.4 kg

DRUGS (17)
  1. ISONIAZID [Suspect]
  2. DILTIAZEM [Concomitant]
  3. INSULIN REG HUMAN   NOVOLIN R [Concomitant]
  4. GLIPIZIDE [Concomitant]
  5. INSULIN 70/30 NPH/REG (HUMAN) [Concomitant]
  6. DARBEPOETIN ALFA, RECOMBINANT [Concomitant]
  7. METOCLOPRAMIDE [Concomitant]
  8. ASPIRIN [Concomitant]
  9. HYDROPHILIC OINT [Concomitant]
  10. FENTANYL [Concomitant]
  11. MORPHINE [Concomitant]
  12. ALBUTEROL/ IPRATROPIUM MDI [Concomitant]
  13. FUROSEMIDE [Concomitant]
  14. DOCUSATE/SENNOSIDES [Concomitant]
  15. CLONIDINE [Concomitant]
  16. MILK OF MAGNESIA TAB [Concomitant]
  17. DIAZEPAM [Concomitant]

REACTIONS (2)
  - ABDOMINAL DISCOMFORT [None]
  - FATIGUE [None]
